FAERS Safety Report 14211104 (Version 2)
Quarter: 2017Q4

REPORT INFORMATION
  Report Type: Spontaneous
  Country: RU (occurrence: RU)
  Receive Date: 20171121
  Receipt Date: 20171121
  Transmission Date: 20180321
  Serious: Yes (Death)
  Sender: FDA-Public Use
  Company Number: RU-SA-2017SA228442

PATIENT
  Age: 63 Year
  Sex: Male
  Weight: 95 kg

DRUGS (8)
  1. COPLAVIX [Suspect]
     Active Substance: ASPIRIN\CLOPIDOGREL BISULFATE
     Dosage: 100+75MG 1 TABLET
     Route: 048
     Dates: start: 20170921
  2. BISOPROLOL [Concomitant]
     Active Substance: BISOPROLOL
     Dosage: 10 MG HALF TABLET
     Route: 048
     Dates: start: 20170921
  3. HEPARIN SODIUM. [Concomitant]
     Active Substance: HEPARIN SODIUM
     Route: 048
     Dates: start: 20170921
  4. PLAVIX [Suspect]
     Active Substance: CLOPIDOGREL BISULFATE
     Dosage: 75 MG 8 TABLETS
     Route: 048
     Dates: start: 20170921
  5. FUROSEMID [Concomitant]
     Active Substance: FUROSEMIDE
     Route: 048
     Dates: start: 20170921
  6. OMEPRAZOLE. [Concomitant]
     Active Substance: OMEPRAZOLE
     Route: 048
     Dates: start: 20170921
  7. ATORVASTATIN [Concomitant]
     Active Substance: ATORVASTATIN
     Route: 048
     Dates: start: 20170921
  8. PRESTARIUM [Concomitant]
     Active Substance: PERINDOPRIL
     Route: 048
     Dates: start: 20170921

REACTIONS (4)
  - Vascular stent thrombosis [Fatal]
  - Electrocardiogram ST segment elevation [Fatal]
  - General physical health deterioration [Fatal]
  - Circulatory collapse [Fatal]
